FAERS Safety Report 9758450 (Version 2)
Quarter: 2013Q4

REPORT INFORMATION
  Report Type: Spontaneous
  Country: TW (occurrence: TW)
  Receive Date: 20131216
  Receipt Date: 20131216
  Transmission Date: 20140711
  Serious: Yes (Death, Hospitalization)
  Sender: FDA-Public Use
  Company Number: TW-PFIZER INC-2013310755

PATIENT
  Age: 65 Year
  Sex: Male

DRUGS (1)
  1. SUTENT [Suspect]
     Indication: RENAL CELL CARCINOMA
     Dosage: 50 MG, DAILY, TWO WEEKS ON AND ONE WEEK OFF
     Route: 048
     Dates: start: 20100203

REACTIONS (7)
  - Death [Fatal]
  - Pneumonia aspiration [Unknown]
  - Septic shock [Unknown]
  - Fatigue [Not Recovered/Not Resolved]
  - Palmar-plantar erythrodysaesthesia syndrome [Not Recovered/Not Resolved]
  - Chills [Not Recovered/Not Resolved]
  - Oedema peripheral [Not Recovered/Not Resolved]
